FAERS Safety Report 7297883-7 (Version None)
Quarter: 2011Q1

REPORT INFORMATION
  Report Type: 
  Country: None (occurrence: None)
  Receive Date: 20110217
  Receipt Date: 20110210
  Transmission Date: 20110831
  Serious: No
  Sender: FDA-Public Use
  Company Number: US-JNJFOC-20110203737

PATIENT
  Sex: Female
  Weight: 99.79 kg

DRUGS (6)
  1. DIOVAN [Concomitant]
     Indication: HYPERTENSION
     Route: 065
  2. FENTANYL-100 [Suspect]
     Indication: RADICULAR PAIN
     Route: 062
  3. FENTANYL-100 [Suspect]
     Indication: PAIN IN EXTREMITY
     Route: 062
  4. SYNTHROID [Concomitant]
     Indication: THYROID DISORDER
     Route: 065
  5. HUMULIN 70/30 [Concomitant]
     Indication: DIABETES MELLITUS
     Dosage: 70/30 IN THE MORNING
     Route: 058
  6. HUMULIN 70/30 [Concomitant]
     Dosage: 70/30 IN THE EVENING
     Route: 058

REACTIONS (3)
  - DRUG EFFECT DECREASED [None]
  - DRUG DOSE OMISSION [None]
  - THERAPY CESSATION [None]
